FAERS Safety Report 6339436-0 (Version None)
Quarter: 2009Q3

REPORT INFORMATION
  Report Type: 
  Country: None (occurrence: None)
  Receive Date: 20090903
  Receipt Date: 20090825
  Transmission Date: 20100115
  Serious: Yes (Other)
  Sender: FDA-Public Use
  Company Number: US-ELI_LILLY_AND_COMPANY-US200908000724

PATIENT
  Age: 49 Year
  Sex: Female

DRUGS (3)
  1. HUMALOG [Suspect]
     Dosage: UNK, UNK
     Route: 058
  2. HUMALOG [Suspect]
     Dosage: UNK, UNKNOWN
  3. PROZAC [Concomitant]

REACTIONS (9)
  - ASTHENIA [None]
  - BLOOD GLUCOSE DECREASED [None]
  - BLOOD GLUCOSE FLUCTUATION [None]
  - BLOOD GLUCOSE INCREASED [None]
  - DECREASED ACTIVITY [None]
  - FATIGUE [None]
  - HEADACHE [None]
  - NON-HODGKIN'S LYMPHOMA [None]
  - SHOCK HYPOGLYCAEMIC [None]
